FAERS Safety Report 7968764-8 (Version None)
Quarter: 2011Q4

REPORT INFORMATION
  Report Type: 
  Country: None (occurrence: None)
  Receive Date: 20111122
  Receipt Date: 20110720
  Transmission Date: 20120403
  Serious: Yes (Disabling)
  Sender: FDA-Public Use
  Company Number: PHHY2011US65643

PATIENT
  Age: 38 Year
  Sex: Female

DRUGS (3)
  1. GILENYA [Suspect]
     Dosage: ORAL
     Route: 048
  2. NTERFERON BETA-1A (INTERFERON BETA-1A) [Concomitant]
  3. MODAFINIL [Concomitant]

REACTIONS (2)
  - DIZZINESS [None]
  - SYNCOPE [None]
